FAERS Safety Report 4606196-0 (Version None)
Quarter: 2005Q1

REPORT INFORMATION
  Report Type: 
  Country: None (occurrence: None)
  Receive Date: 20050311
  Receipt Date: 20050107
  Transmission Date: 20050727
  Serious: Yes (Hospitalization)
  Sender: FDA-Public Use
  Company Number: US-AMGEN-US112892

PATIENT
  Sex: Female
  Weight: 59.5 kg

DRUGS (3)
  1. ARANESP [Suspect]
     Indication: ANAEMIA OF MALIGNANT DISEASE
     Route: 058
     Dates: start: 20041207
  2. TAXOTERE [Concomitant]
     Dates: start: 20041021, end: 20041207
  3. NAVELBINE [Concomitant]
     Dates: start: 20041215, end: 20050125

REACTIONS (1)
  - HAEMOGLOBIN DECREASED [None]
